FAERS Safety Report 25180440 (Version 3)
Quarter: 2025Q3

REPORT INFORMATION
  Report Type: Report from Study
  Country: EU (occurrence: EU)
  Receive Date: 20250409
  Receipt Date: 20250729
  Transmission Date: 20251021
  Serious: Yes (Death, Other)
  Sender: PFIZER
  Company Number: EU-TAKEDA-2022TUS019179

PATIENT
  Age: 72 Year
  Sex: Male
  Weight: 81 kg

DRUGS (7)
  1. BRENTUXIMAB VEDOTIN [Suspect]
     Active Substance: BRENTUXIMAB VEDOTIN
     Indication: Cutaneous T-cell lymphoma
     Dosage: 153 Q3WEEKS
     Route: 042
     Dates: start: 20211015
  2. BRENTUXIMAB VEDOTIN [Suspect]
     Active Substance: BRENTUXIMAB VEDOTIN
     Dosage: 147.6 Q3WEEKS
     Route: 042
  3. ASPIRIN [Concomitant]
     Active Substance: ASPIRIN
     Indication: Myocardial ischaemia
     Route: 048
     Dates: start: 201503
  4. OMEPRAZOLE [Concomitant]
     Active Substance: OMEPRAZOLE
     Indication: Peptic ulcer
     Route: 048
     Dates: start: 201503
  5. VALSARTAN [Concomitant]
     Active Substance: VALSARTAN
     Indication: Hypertension
     Route: 048
     Dates: start: 201503
  6. GLICLAZIDE [Concomitant]
     Active Substance: GLICLAZIDE
     Indication: Diabetes mellitus
     Route: 048
     Dates: start: 201602
  7. EZEHRON DUO [Concomitant]
     Indication: Dyslipidaemia
     Route: 048
     Dates: start: 201601

REACTIONS (2)
  - Death [Fatal]
  - Polyneuropathy [Not Recovered/Not Resolved]

NARRATIVE: CASE EVENT DATE: 20211015
